FAERS Safety Report 8395581-X (Version None)
Quarter: 2012Q2

REPORT INFORMATION
  Report Type: 
  Country: None (occurrence: None)
  Receive Date: 20120530
  Receipt Date: 20110927
  Transmission Date: 20120825
  Serious: No
  Sender: FDA-Public Use
  Company Number: US-GLAXOSMITHKLINE-A0946198A

PATIENT
  Age: 89 Year
  Sex: Male

DRUGS (9)
  1. VESICARE [Concomitant]
  2. FOLIC ACID [Concomitant]
  3. POTASSIUM CHLORIDE [Concomitant]
  4. WARFARIN SODIUM [Concomitant]
  5. LANSOPRAZOLE [Concomitant]
  6. DORZOLAMIDE [Concomitant]
  7. VENTOLIN [Suspect]
     Indication: BRONCHOSPASM
     Dosage: 2PUFF THREE TIMES PER DAY
     Route: 055
     Dates: start: 20110101
  8. DOCULACE [Concomitant]
  9. AVODART [Concomitant]

REACTIONS (1)
  - DYSPNOEA [None]
